FAERS Safety Report 4711007-9 (Version None)
Quarter: 2005Q2

REPORT INFORMATION
  Report Type: 
  Country: None (occurrence: None)
  Receive Date: 20050629
  Receipt Date: 20050316
  Transmission Date: 20051028
  Serious: No
  Sender: FDA-Public Use
  Company Number: 05P-163-0285847-00

PATIENT
  Age: 83 Year
  Sex: Female
  Weight: 44.4525 kg

DRUGS (10)
  1. HUMIRA [Suspect]
     Indication: RHEUMATOID ARTHRITIS
     Dosage: 40 MG, 1 IN 2 WK, SUBCUTANEOUS
     Route: 058
     Dates: start: 20040802, end: 20050130
  2. LEVOTHYROXINE SODIUM [Concomitant]
  3. PANTOPRAZOLE [Concomitant]
  4. PREDNISONE TAB [Concomitant]
  5. ATENOLOL [Concomitant]
  6. ACETAMINOPHEN [Concomitant]
  7. CLOPIDOGREL BISULFATE [Concomitant]
  8. FEXOFENADINE HYDROCHLORIDE [Concomitant]
  9. CALCIUM WITH VITAMIN D [Concomitant]
  10. UBIDECARENONE [Concomitant]

REACTIONS (2)
  - HEPATIC ENZYME INCREASED [None]
  - INJECTION SITE ERYTHEMA [None]
